FAERS Safety Report 7235782-7 (Version None)
Quarter: 2011Q1

REPORT INFORMATION
  Report Type: 
  Country: None (occurrence: None)
  Receive Date: 20110110
  Receipt Date: 20101227
  Transmission Date: 20110831
  Serious: Yes (Other)
  Sender: FDA-Public Use
  Company Number: 792076

PATIENT
  Age: 48 Year
  Sex: Female
  Weight: 60 kg

DRUGS (6)
  1. PACLITAXEL [Suspect]
     Indication: OVARIAN CANCER
     Dosage: 30 MG MILLIGRAM(S), INTRAVENOUS, 70 MG MILLOIGRAM(S)
     Route: 042
     Dates: start: 20101203, end: 20101203
  2. PACLITAXEL [Suspect]
     Indication: OVARIAN CANCER
     Dosage: 30 MG MILLIGRAM(S), INTRAVENOUS, 70 MG MILLOIGRAM(S)
     Route: 042
     Dates: start: 20101203, end: 20101203
  3. ONSIA [Suspect]
     Indication: OVARIAN CANCER
     Dosage: 8 MG MILLIGRAM(S), INTRAVENOUS
     Route: 042
     Dates: start: 20101203, end: 20101203
  4. CARBOPLATIN [Suspect]
     Indication: OVARIAN CANCER
     Dosage: 600 MG MILLIGRAM(S), INTRAVENOUS
     Route: 042
     Dates: start: 20101203, end: 20101203
  5. RANITIDINE [Suspect]
     Indication: OVARIAN CANCER
     Dosage: 50 MG MILLIGRAM(S)E,
     Dates: start: 20101203, end: 20101203
  6. DEXAMETHASONE [Suspect]
     Indication: OVARIAN CANCER
     Dosage: 20 MG MILLIGRAM(S)I, INTRAVENOUS
     Route: 042
     Dates: start: 20101203, end: 20101203

REACTIONS (1)
  - CHEST PAIN [None]
